FAERS Safety Report 9549499 (Version 2)
Quarter: 2013Q4

REPORT INFORMATION
  Report Type: Spontaneous
  Country: DE (occurrence: DE)
  Receive Date: 20130924
  Receipt Date: 20131101
  Transmission Date: 20140711
  Serious: Yes (Other)
  Sender: FDA-Public Use
  Company Number: CHNY2013DE002032

PATIENT
  Age: 24 Year
  Sex: Male

DRUGS (3)
  1. SCOPODERM TTS [Suspect]
     Indication: SALIVARY HYPERSECRETION
     Dosage: 1 DF, UNK
     Route: 062
     Dates: start: 201304
  2. SCOPODERM TTS [Suspect]
     Dosage: 0.5 DF, UNK
     Route: 062
  3. ROBINUL [Concomitant]
     Indication: SALIVARY HYPERSECRETION
     Dosage: UNK, UNK

REACTIONS (10)
  - Heart rate decreased [Recovering/Resolving]
  - Heart rate irregular [Recovering/Resolving]
  - Seborrhoea [Unknown]
  - Rash [Unknown]
  - Feeling cold [Unknown]
  - Fatigue [Unknown]
  - Incorrect dose administered [Unknown]
  - Wrong technique in drug usage process [Unknown]
  - Inappropriate schedule of drug administration [Unknown]
  - Off label use [Unknown]
